FAERS Safety Report 7738803-8 (Version None)
Quarter: 2011Q3

REPORT INFORMATION
  Report Type: 
  Country: None (occurrence: None)
  Receive Date: 20110909
  Receipt Date: 20110902
  Transmission Date: 20111222
  Serious: Yes (Hospitalization)
  Sender: FDA-Public Use
  Company Number: US-BRISTOL-MYERS SQUIBB COMPANY-16027500

PATIENT
  Age: 68 Year
  Sex: Female
  Weight: 94 kg

DRUGS (3)
  1. ERBITUX [Suspect]
     Indication: NON-SMALL CELL LUNG CANCER
     Dosage: LAST DOSE ON 18JUL11
     Dates: start: 20110502
  2. CARBOPLATIN [Suspect]
     Indication: NON-SMALL CELL LUNG CANCER
     Dosage: LAST DOSE ON 19JUL11
     Dates: start: 20110502
  3. TAXOL [Suspect]
     Indication: NON-SMALL CELL LUNG CANCER
     Dosage: LAST DOSE ON 19JUL11
     Dates: start: 20110502

REACTIONS (5)
  - DIARRHOEA [None]
  - HYPOTENSION [None]
  - DEHYDRATION [None]
  - PANCYTOPENIA [None]
  - NEUTROPHIL COUNT DECREASED [None]
